FAERS Safety Report 5399187-6 (Version None)
Quarter: 2007Q3

REPORT INFORMATION
  Report Type: 
  Country: None (occurrence: None)
  Receive Date: 20070727
  Receipt Date: 20070717
  Transmission Date: 20080115
  Serious: Yes (Other)
  Sender: FDA-Public Use
  Company Number: CA-JNJFOC-20070704140

PATIENT
  Sex: Male
  Weight: 83 kg

DRUGS (4)
  1. REMICADE [Suspect]
     Indication: ANKYLOSING SPONDYLITIS
     Route: 042
     Dates: start: 20070215, end: 20070717
  2. TYLENOL (CAPLET) [Concomitant]
     Indication: PREMEDICATION
     Route: 048
     Dates: end: 20070717
  3. BENADRYL [Concomitant]
     Indication: PREMEDICATION
     Route: 048
  4. SOLU-CORTEF [Concomitant]
     Indication: PREMEDICATION
     Route: 042
     Dates: end: 20070717

REACTIONS (6)
  - BLOOD PRESSURE INCREASED [None]
  - COUGH [None]
  - FLUSHING [None]
  - INFUSION RELATED REACTION [None]
  - RESPIRATORY TRACT CONGESTION [None]
  - SENSORY DISTURBANCE [None]
